FAERS Safety Report 19714255 (Version 1)
Quarter: 2021Q3

REPORT INFORMATION
  Report Type: Spontaneous
  Country: JP (occurrence: JP)
  Receive Date: 20210818
  Receipt Date: 20210818
  Transmission Date: 20211014
  Serious: Yes (Hospitalization, Other)
  Sender: FDA-Public Use
  Company Number: JP-TEVA-2021-JP-1942106

PATIENT
  Age: 51 Year
  Sex: Male

DRUGS (11)
  1. METHYLPREDNISOLONE SODIUM SUCCINATE. [Suspect]
     Active Substance: METHYLPREDNISOLONE SODIUM SUCCINATE
     Indication: IMMUNOSUPPRESSANT DRUG THERAPY
     Route: 065
     Dates: start: 2011
  2. PREDNISOLONE. [Suspect]
     Active Substance: PREDNISOLONE
     Indication: IMMUNOSUPPRESSANT DRUG THERAPY
     Dosage: 10 MILLIGRAM DAILY;
     Route: 065
     Dates: start: 2011
  3. VANCOMYCIN [Suspect]
     Active Substance: VANCOMYCIN
     Indication: BACTERIAL INFECTION
     Route: 065
  4. CYCLOSPORINE A [Suspect]
     Active Substance: CYCLOSPORINE
     Indication: IMMUNOSUPPRESSANT DRUG THERAPY
     Dosage: DOSE:50?100 MG
     Route: 065
     Dates: start: 2011
  5. LIPID AMPHOTERICIN B [Concomitant]
     Indication: CRYPTOCOCCOSIS
     Route: 065
     Dates: start: 20130730
  6. FLUCONAZOLE. [Concomitant]
     Active Substance: FLUCONAZOLE
     Indication: CRYPTOCOCCOSIS
     Route: 065
  7. MIZORIBINE [Suspect]
     Active Substance: MIZORIBINE
     Indication: IMMUNOSUPPRESSANT DRUG THERAPY
     Dosage: DOSE: 50?100 MG/DAY
     Route: 065
     Dates: start: 2011
  8. LIPID AMPHOTERICIN B [Concomitant]
     Indication: CRYPTOCOCCOSIS
     Route: 065
     Dates: start: 201207
  9. METHYLPREDNISOLONE SODIUM SUCCINATE. [Suspect]
     Active Substance: METHYLPREDNISOLONE SODIUM SUCCINATE
     Indication: IMMUNOSUPPRESSANT DRUG THERAPY
     Route: 065
     Dates: start: 2011
  10. METHYLPREDNISOLONE SODIUM SUCCINATE. [Suspect]
     Active Substance: METHYLPREDNISOLONE SODIUM SUCCINATE
     Indication: IMMUNOSUPPRESSANT DRUG THERAPY
     Route: 065
     Dates: start: 2011
  11. FLUCYTOSINE. [Concomitant]
     Active Substance: FLUCYTOSINE
     Indication: CRYPTOCOCCOSIS
     Route: 065

REACTIONS (15)
  - Hyperammonaemia [Unknown]
  - Disseminated intravascular coagulation [Unknown]
  - Cryptococcosis [Recovering/Resolving]
  - Pseudomonas infection [Recovering/Resolving]
  - Cytomegalovirus enteritis [Unknown]
  - Immune reconstitution inflammatory syndrome [Recovering/Resolving]
  - Ascites [Unknown]
  - Urinary tract infection [Unknown]
  - Wound infection staphylococcal [Recovering/Resolving]
  - Wound infection pseudomonas [Recovering/Resolving]
  - Cytomegalovirus chorioretinitis [Unknown]
  - Prostatic abscess [Unknown]
  - Pancytopenia [Unknown]
  - Necrotising fasciitis fungal [Recovering/Resolving]
  - Cytomegalovirus infection [Unknown]

NARRATIVE: CASE EVENT DATE: 2012
